FAERS Safety Report 4344084-8 (Version None)
Quarter: 2004Q2

REPORT INFORMATION
  Report Type: 
  Country: None (occurrence: None)
  Receive Date: 20040419
  Receipt Date: 20040402
  Transmission Date: 20050107
  Serious: Yes (Hospitalization)
  Sender: FDA-Public Use
  Company Number: 171925

PATIENT
  Age: 60 Year
  Sex: Male
  Weight: 71 kg

DRUGS (2)
  1. AVONEX [Suspect]
     Indication: MULTIPLE SCLEROSIS
     Dosage: 30 MCG QW IM
     Route: 030
     Dates: start: 20000101, end: 20010502
  2. IBUPROFEN (ANCOGRANULAT) [Concomitant]

REACTIONS (16)
  - ASTHENIA [None]
  - BENIGN PROSTATIC HYPERPLASIA [None]
  - BRADYKINESIA [None]
  - CHOLECYSTITIS [None]
  - DIZZINESS [None]
  - ERYTHEMA [None]
  - GANGRENE [None]
  - GENERAL PHYSICAL HEALTH DETERIORATION [None]
  - GOITRE [None]
  - HAEMANGIOMA [None]
  - HEADACHE [None]
  - KYPHOSIS [None]
  - LARYNGEAL CANCER [None]
  - MYALGIA [None]
  - MYELOPATHY [None]
  - PANCYTOPENIA [None]
